FAERS Safety Report 4756289-2 (Version None)
Quarter: 2005Q3

REPORT INFORMATION
  Report Type: 
  Country: None (occurrence: None)
  Receive Date: 20050830
  Receipt Date: 20050523
  Transmission Date: 20060218
  Serious: No
  Sender: FDA-Public Use
  Company Number: US-GLAXOSMITHKLINE-A0559732A

PATIENT
  Sex: Female

DRUGS (2)
  1. WELLBUTRIN XL [Suspect]
     Indication: DEPRESSION
     Dosage: 150MG PER DAY
     Route: 048
     Dates: end: 20050522
  2. IBUPROFEN [Concomitant]

REACTIONS (9)
  - AGITATION [None]
  - BRUXISM [None]
  - CONFUSIONAL STATE [None]
  - DYSPNOEA [None]
  - FLUSHING [None]
  - MOUTH ULCERATION [None]
  - NAUSEA [None]
  - TONGUE DISORDER [None]
  - VISUAL DISTURBANCE [None]
